FAERS Safety Report 4967417-8 (Version None)
Quarter: 2006Q2

REPORT INFORMATION
  Report Type: 
  Country: None (occurrence: None)
  Receive Date: 20060404
  Receipt Date: 20060322
  Transmission Date: 20061013
  Serious: Yes (Other)
  Sender: FDA-Public Use
  Company Number: 2006040195

PATIENT
  Age: 64 Year
  Sex: Female
  Weight: 91.173 kg

DRUGS (7)
  1. BENADRYL [Suspect]
     Dosage: 1 KAPSEAL ONCE, ORAL
     Route: 048
     Dates: start: 20060321, end: 20060321
  2. CISPLATIN [Concomitant]
  3. SALBUTAMOL (SALBUTAMOL) [Concomitant]
  4. QUINAPRIL HCL [Concomitant]
  5. DONEPEZIL HCL [Concomitant]
  6. INSULIN (INSULIN) [Concomitant]
  7. ATORVATATIN (ATORVASTATIN) [Concomitant]

REACTIONS (7)
  - CHEST DISCOMFORT [None]
  - COUGH [None]
  - DYSPNOEA [None]
  - FEELING ABNORMAL [None]
  - HEADACHE [None]
  - PRURITUS GENERALISED [None]
  - THROAT TIGHTNESS [None]
